FAERS Safety Report 9430495 (Version 1)
Quarter: 2013Q3

REPORT INFORMATION
  Report Type: Spontaneous
  Country: KR (occurrence: KR)
  Receive Date: 20130730
  Receipt Date: 20130730
  Transmission Date: 20140515
  Serious: Yes (Death, Hospitalization)
  Sender: FDA-Public Use
  Company Number: KR-GLAXOSMITHKLINE-B0911703A

PATIENT
  Age: 56 Year
  Sex: Female
  Weight: 54 kg

DRUGS (19)
  1. HYCAMTIN [Suspect]
     Indication: SMALL CELL LUNG CANCER
     Dosage: 2.5MG PER DAY
     Route: 065
     Dates: start: 20130422, end: 20130425
  2. HYCAMTIN [Suspect]
     Indication: SMALL CELL LUNG CANCER
     Dosage: 2.5MG PER DAY
     Route: 065
     Dates: start: 20130516, end: 20130519
  3. ETOPOSIDE [Suspect]
     Indication: SMALL CELL LUNG CANCER
     Dates: start: 20120126, end: 20120520
  4. CISPLATIN [Suspect]
     Indication: SMALL CELL LUNG CANCER
     Dates: start: 20120917, end: 20130104
  5. ETOPOSIDE [Suspect]
     Indication: SMALL CELL LUNG CANCER
     Dates: start: 20130124, end: 20130216
  6. UNKNOWN DRUG [Concomitant]
     Indication: PLEURAL EFFUSION
     Dosage: 80MG PER DAY
     Route: 048
     Dates: start: 20130406, end: 20130717
  7. ERDOS [Concomitant]
     Indication: SMALL CELL LUNG CANCER
     Dosage: 900MG PER DAY
     Route: 048
     Dates: start: 20120116, end: 20130717
  8. CODEINE [Concomitant]
     Indication: SMALL CELL LUNG CANCER
     Dosage: 60MG PER DAY
     Route: 048
     Dates: start: 20120203, end: 20130717
  9. MUCOSTA [Concomitant]
     Indication: SMALL CELL LUNG CANCER
     Dosage: 300MG PER DAY
     Route: 048
     Dates: start: 20130416, end: 20130717
  10. STOGAR [Concomitant]
     Indication: PROPHYLAXIS
     Dosage: 20MG PER DAY
     Route: 048
     Dates: start: 20130319, end: 20130717
  11. MAGNESIUM [Concomitant]
     Indication: PROPHYLAXIS
     Dosage: 500MG PER DAY
     Route: 048
     Dates: start: 20130422, end: 20130628
  12. SPIRIVA [Concomitant]
     Indication: SMALL CELL LUNG CANCER
     Route: 055
     Dates: start: 20130405, end: 20130701
  13. ULCERMIN [Concomitant]
     Indication: PROPHYLAXIS
     Route: 048
     Dates: start: 20130523, end: 20130624
  14. LEVOTUSS [Concomitant]
     Indication: PNEUMONIA
     Dosage: 180MG PER DAY
     Route: 048
     Dates: start: 20130623, end: 20130717
  15. TARGIN [Concomitant]
     Indication: PAIN
     Dosage: 10MG PER DAY
     Route: 048
     Dates: start: 20130624, end: 20130717
  16. UNKNOWN DRUG [Concomitant]
     Indication: PNEUMONIA
     Dosage: 750MG PER DAY
     Route: 048
     Dates: start: 20130628, end: 20130708
  17. CRAVIT [Concomitant]
     Indication: PNEUMONIA
     Dosage: 750MG PER DAY
     Route: 042
     Dates: start: 20130617, end: 20130628
  18. UNKNOWN DRUG [Concomitant]
     Indication: PNEUMONIA
     Dosage: 6G PER DAY
     Route: 042
     Dates: start: 20130617, end: 20130628
  19. UFT [Concomitant]
     Indication: SMALL CELL LUNG CANCER
     Dosage: .5MG PER DAY
     Route: 048
     Dates: start: 20130709, end: 20130717

REACTIONS (3)
  - Nausea [Recovered/Resolved]
  - Dyspnoea [Fatal]
  - Superior vena cava syndrome [Fatal]
